FAERS Safety Report 5608169-8 (Version None)
Quarter: 2008Q1

REPORT INFORMATION
  Report Type: 
  Country: None (occurrence: None)
  Receive Date: 20080125
  Receipt Date: 20080107
  Transmission Date: 20080703
  Serious: Yes (Hospitalization)
  Sender: FDA-Public Use
  Company Number: 2008BI001696

PATIENT
  Age: 70 Year
  Sex: Female

DRUGS (2)
  1. ZEVALIN [Suspect]
     Indication: NON-HODGKIN'S LYMPHOMA
     Dosage: 1.6 MG; 1X; IV
     Route: 042
     Dates: start: 20060323, end: 20060323
  2. RITUXIMAB [Concomitant]

REACTIONS (2)
  - AORTIC VALVE INCOMPETENCE [None]
  - BRADYCARDIA [None]
